FAERS Safety Report 9705315 (Version 2)
Quarter: 2014Q2

REPORT INFORMATION
  Report Type: Spontaneous
  Country: US (occurrence: US)
  Receive Date: 20131122
  Receipt Date: 20140519
  Transmission Date: 20141212
  Serious: Yes (Hospitalization)
  Sender: FDA-Public Use
  Company Number: US-B.I. PHARMACEUTICALS,INC./RIDGEFIELD-2013-BI-37939BP

PATIENT
  Sex: Female

DRUGS (10)
  1. PRADAXA [Suspect]
     Indication: ATRIAL FIBRILLATION
     Dosage: 300 MG
     Route: 048
     Dates: start: 201108, end: 20130122
  2. PRADAXA [Suspect]
     Indication: ANTICOAGULANT THERAPY
  3. ACIDOPHILUS [Concomitant]
     Route: 065
  4. COREG [Concomitant]
     Route: 065
  5. LANTUS [Concomitant]
     Route: 065
  6. LASIX [Concomitant]
     Route: 065
  7. SYMBICORT [Concomitant]
     Route: 065
  8. TYLENOL [Concomitant]
     Route: 065
  9. ZOCOR [Concomitant]
     Route: 065
  10. METFORMIN [Concomitant]
     Route: 065

REACTIONS (6)
  - Haematuria [Unknown]
  - Gastrointestinal haemorrhage [Unknown]
  - Haemorrhagic anaemia [Unknown]
  - Anaemia [Unknown]
  - Urinary tract infection [Unknown]
  - Sepsis [Unknown]
